FAERS Safety Report 7085114-2 (Version None)
Quarter: 2010Q4

REPORT INFORMATION
  Report Type: 
  Country: None (occurrence: None)
  Receive Date: 20101105
  Receipt Date: 20101025
  Transmission Date: 20110411
  Serious: Yes (Hospitalization)
  Sender: FDA-Public Use
  Company Number: FR-JNJFOC-20101007098

PATIENT
  Sex: Female

DRUGS (5)
  1. PREZISTA [Suspect]
     Indication: HIV INFECTION
     Route: 048
  2. TRUVADA [Suspect]
     Indication: HIV INFECTION
     Dosage: EXCAT DOSSAGE : EMTRICITABINE 200 MG/ TENOFOVIR245 MG
     Route: 065
  3. NORVIR [Suspect]
     Indication: HIV INFECTION
     Route: 065
  4. PIASCLEDINE [Concomitant]
     Route: 048
  5. TANAKAN [Concomitant]
     Route: 048

REACTIONS (2)
  - ANAPHYLACTIC SHOCK [None]
  - RASH MACULO-PAPULAR [None]
